FAERS Safety Report 6927654-X (Version None)
Quarter: 2010Q3

REPORT INFORMATION
  Report Type: 
  Country: None (occurrence: None)
  Receive Date: 20100817
  Receipt Date: 20100809
  Transmission Date: 20110219
  Serious: Yes (Other)
  Sender: FDA-Public Use
  Company Number: US-NOVOPROD-309166

PATIENT
  Sex: Female
  Weight: 54.422 kg

DRUGS (9)
  1. NORDITROPIN NORDIFLEX [Suspect]
     Indication: BODY HEIGHT BELOW NORMAL
     Dosage: 2 MG, QD
     Route: 058
     Dates: start: 20100303, end: 20100317
  2. NORDITROPIN NORDIFLEX [Suspect]
     Dosage: 1 MG, QD
     Route: 058
     Dates: start: 20100603
  3. MERCAPTOPURINE [Concomitant]
     Dosage: UNK
  4. DIGESTIVES, INCL ENZYMES [Concomitant]
     Indication: PRODUCT USED FOR UNKNOWN INDICATION
     Dosage: 1 TAB, QD
     Dates: start: 20090107
  5. CALTRATE 600 + D [Concomitant]
     Indication: PRODUCT USED FOR UNKNOWN INDICATION
     Dosage: 1 TAB, QD
     Dates: start: 20090223
  6. OMEPRAZOLE [Concomitant]
     Indication: PRODUCT USED FOR UNKNOWN INDICATION
     Dosage: 20 MG TAB , QD
     Dates: start: 20090914
  7. MERCAPTOPURINE [Concomitant]
     Indication: PRODUCT USED FOR UNKNOWN INDICATION
     Dosage: 50 MG TAB, QD
     Dates: start: 20090820
  8. VITAMIN D3 [Concomitant]
     Indication: PRODUCT USED FOR UNKNOWN INDICATION
     Dosage: 400 UNITS/NL 3ML, QD
     Dates: start: 20100325
  9. FLORASTOR [Concomitant]
     Indication: PRODUCT USED FOR UNKNOWN INDICATION
     Dosage: 250 MG, BID

REACTIONS (5)
  - ARTHRALGIA [None]
  - HEADACHE [None]
  - NAUSEA [None]
  - PAPILLOEDEMA [None]
  - TINNITUS [None]
